FAERS Safety Report 12809567 (Version 2)
Quarter: 2016Q4

REPORT INFORMATION
  Report Type: Spontaneous
  Country: US (occurrence: US)
  Receive Date: 20161005
  Receipt Date: 20161017
  Transmission Date: 20170207
  Serious: Yes (Other)
  Sender: FDA-Public Use
  Company Number: US-SUN PHARMACEUTICAL INDUSTRIES LTD-2016US-125305

PATIENT
  Age: 34 Year
  Sex: Female

DRUGS (2)
  1. TESTOSTERONE. [Suspect]
     Active Substance: TESTOSTERONE
     Indication: PRODUCT USED FOR UNKNOWN INDICATION
     Dosage: RECEIVED TESTOSTERONE TREATMENT (60 MG, SUBCUTANEOUS AND INTRAMUSCULAR) FOR 3 YR
     Route: 058
  2. TESTOSTERONE. [Suspect]
     Active Substance: TESTOSTERONE
     Dosage: RECEIVED TESTOSTERONE TREATMENT (60 MG, SUBCUTANEOUS AND INTRAMUSCULAR) FOR 3 YR
     Route: 030

REACTIONS (1)
  - Metaplasia [Unknown]
